FAERS Safety Report 5064917-X (Version None)
Quarter: 2006Q3

REPORT INFORMATION
  Report Type: 
  Country: None (occurrence: None)
  Receive Date: 20060725
  Receipt Date: 20060711
  Transmission Date: 20061208
  Serious: Yes (Hospitalization)
  Sender: FDA-Public Use
  Company Number: 2006-DE-03532GD

PATIENT
  Age: 14 Year
  Sex: Female

DRUGS (3)
  1. PREDNISONE TAB [Suspect]
     Indication: DERMATITIS EXFOLIATIVE
     Dosage: 60 MG (, 3 DOSES),
  2. METHYLPREDNISOLONE [Suspect]
     Indication: RASH MACULAR
     Dosage: 180 MG (3 DOSES)
  3. BUPROPION HCL [Concomitant]

REACTIONS (6)
  - DRUG INEFFECTIVE [None]
  - HEADACHE [None]
  - RASH MACULAR [None]
  - SKIN TOXICITY [None]
  - TOXIC EPIDERMAL NECROLYSIS [None]
  - VISION BLURRED [None]
